FAERS Safety Report 6285845-8 (Version None)
Quarter: 2009Q3

REPORT INFORMATION
  Report Type: 
  Country: None (occurrence: None)
  Receive Date: 20090724
  Receipt Date: 20090710
  Transmission Date: 20100115
  Serious: Yes (Life-Threatening)
  Sender: FDA-Public Use
  Company Number: 007095

PATIENT
  Age: 27 Year

DRUGS (2)
  1. BUSULFEX [Suspect]
     Indication: ACUTE LYMPHOCYTIC LEUKAEMIA
     Dosage: 0.8 MG/KG, BID INTRAVENOUS
     Route: 042
     Dates: start: 20090707, end: 20090707
  2. FLUDARABINE PHOSPHATE [Suspect]
     Dosage: 30 DF, BID
     Dates: start: 20090706, end: 20090707

REACTIONS (3)
  - ALTERED STATE OF CONSCIOUSNESS [None]
  - CONVULSION [None]
  - ENCEPHALITIS [None]
